FAERS Safety Report 5518802-7 (Version None)
Quarter: 2007Q4

REPORT INFORMATION
  Report Type: 
  Country: None (occurrence: None)
  Receive Date: 20071115
  Receipt Date: 20071113
  Transmission Date: 20080405
  Serious: Yes (Hospitalization)
  Sender: FDA-Public Use
  Company Number: GB-MERCK-0710GBR00122

PATIENT
  Age: 34 Year
  Sex: Female

DRUGS (3)
  1. HYDROCORTONE [Suspect]
     Indication: ADDISON'S DISEASE
     Route: 048
     Dates: start: 20070324
  2. LISINOPRIL [Concomitant]
     Route: 065
  3. MESALAMINE [Concomitant]
     Route: 065

REACTIONS (2)
  - ADRENOCORTICAL INSUFFICIENCY ACUTE [None]
  - POOR QUALITY DRUG ADMINISTERED [None]
